FAERS Safety Report 21028274 (Version 2)
Quarter: 2023Q2

REPORT INFORMATION
  Report Type: Other
  Country: US (occurrence: None)
  Receive Date: 20220630
  Receipt Date: 20230426
  Transmission Date: 20230721
  Serious: Yes (Other)
  Sender: FDA-Public Use
  Company Number: US-ROCHE-3124663

PATIENT
  Age: 68 Year
  Sex: Female

DRUGS (1)
  1. XELODA [Suspect]
     Active Substance: CAPECITABINE
     Indication: Appendix cancer
     Dosage: TAKE 3 TABLET(S) BY MOUTH TWICE A DAY AFTER MEALS FOR 2 WEEK(S) ON, THEN 1 WEEK(S) OFF EVERY 3 WEEKS
     Route: 048

REACTIONS (4)
  - Pneumonia [Unknown]
  - COVID-19 [Unknown]
  - Herpes zoster [Unknown]
  - Off label use [Unknown]
